FAERS Safety Report 18889935 (Version 2)
Quarter: 2021Q4

REPORT INFORMATION
  Report Type: Spontaneous
  Country: GB (occurrence: GB)
  Receive Date: 20210213
  Receipt Date: 20211014
  Transmission Date: 20220303
  Serious: Yes (Other)
  Sender: FDA-Public Use
  Company Number: None

PATIENT
  Age: 34 Year
  Sex: Male
  Weight: 83 kg

DRUGS (3)
  1. PENICILLIN V [Suspect]
     Active Substance: PENICILLIN V
     Indication: Ill-defined disorder
     Dosage: 1 DF, QID (TAKE ONE 4 TIMES/DAY)
     Route: 065
     Dates: start: 20210202
  2. PENICILLIN V [Suspect]
     Active Substance: PENICILLIN V
     Dosage: UNK
     Route: 065
     Dates: start: 20210203
  3. DIFFLAM [Concomitant]
     Indication: Ill-defined disorder
     Dosage: USE EVERY 3 HRS
     Route: 065
     Dates: start: 20210202

REACTIONS (1)
  - Rash [Not Recovered/Not Resolved]

NARRATIVE: CASE EVENT DATE: 20210203
